FAERS Safety Report 6387205-8 (Version None)
Quarter: 2009Q4

REPORT INFORMATION
  Report Type: 
  Country: None (occurrence: None)
  Receive Date: 20091002
  Receipt Date: 20090928
  Transmission Date: 20100525
  Serious: Yes (Hospitalization)
  Sender: FDA-Public Use
  Company Number: US-GENENTECH-290900

PATIENT
  Sex: Male
  Weight: 78.912 kg

DRUGS (15)
  1. BEVACIZUMAB [Suspect]
     Indication: NON-SMALL CELL LUNG CANCER
     Dosage: 10 MG/KG, Q2W
     Route: 043
     Dates: start: 20090911, end: 20090911
  2. ALIMTA [Suspect]
     Indication: NON-SMALL CELL LUNG CANCER
     Dosage: 500 MG/M2, Q2W
     Route: 042
     Dates: start: 20090911, end: 20090911
  3. GEMCITABINE [Suspect]
     Indication: NON-SMALL CELL LUNG CANCER
     Dosage: 1500 MG/M2, Q2W
     Route: 042
     Dates: start: 20090911, end: 20090911
  4. FERATAB [Concomitant]
     Indication: DRUG USE FOR UNKNOWN INDICATION
     Dosage: 325 MG, TID
     Route: 048
  5. K-TAB [Concomitant]
     Indication: DRUG USE FOR UNKNOWN INDICATION
     Dosage: 20 MEQ, QD
     Route: 048
  6. GLUCOPHAGE [Concomitant]
     Indication: DRUG USE FOR UNKNOWN INDICATION
     Dosage: 500 MG, QD
     Route: 048
  7. LIPITOR [Concomitant]
     Indication: DRUG USE FOR UNKNOWN INDICATION
     Dosage: 20 MG, QD
     Route: 048
  8. DYRENIUM [Concomitant]
     Indication: DRUG USE FOR UNKNOWN INDICATION
     Dosage: 37.5 MG, QD
     Route: 048
  9. FOLIC ACID [Concomitant]
     Indication: DRUG USE FOR UNKNOWN INDICATION
     Dosage: 1 MG, QD
     Route: 048
  10. PROMETHAZINE [Concomitant]
     Indication: DRUG USE FOR UNKNOWN INDICATION
     Dosage: 25 MG, PRN
     Route: 048
  11. OXYCODONE HCL AND ACETAMINOPHEN [Concomitant]
     Indication: DRUG USE FOR UNKNOWN INDICATION
     Dosage: UNK
     Route: 048
  12. AMPICILLIN [Concomitant]
     Indication: DRUG USE FOR UNKNOWN INDICATION
     Dosage: 500 MG, BID
     Route: 048
  13. CLARITHROMYCIN [Concomitant]
     Indication: HELICOBACTER INFECTION
     Dosage: 500 MG, BID
     Dates: start: 20090829, end: 20090913
  14. LACTOBACILLUS ACIDOPHILUS [Concomitant]
     Indication: HELICOBACTER INFECTION
     Dosage: UNK
     Route: 048
     Dates: start: 20090829, end: 20090913
  15. B12 COMPLEX [Concomitant]
     Indication: DRUG USE FOR UNKNOWN INDICATION
     Dosage: 1000 MEQ, UNK
     Dates: start: 20090828

REACTIONS (2)
  - NEUTROPENIA [None]
  - PYREXIA [None]
